FAERS Safety Report 4438556-5 (Version None)
Quarter: 2004Q3

REPORT INFORMATION
  Report Type: 
  Country: None (occurrence: None)
  Receive Date: 20040728
  Receipt Date: 20040303
  Transmission Date: 20050211
  Serious: No
  Sender: FDA-Public Use
  Company Number: USA040361038

PATIENT
  Sex: Female
  Weight: 42 kg

DRUGS (1)
  1. STRATTERA [Suspect]
     Indication: ATTENTION DEFICIT/HYPERACTIVITY DISORDER
     Dosage: 80 MG
     Dates: start: 20030401

REACTIONS (3)
  - DRUG INEFFECTIVE [None]
  - EMOTIONAL DISORDER [None]
  - MOOD SWINGS [None]
